FAERS Safety Report 22105308 (Version 1)
Quarter: 2023Q1

REPORT INFORMATION
  Report Type: Report from Study
  Country: US (occurrence: US)
  Receive Date: 20230317
  Receipt Date: 20230317
  Transmission Date: 20230418
  Serious: No
  Sender: FDA-Public Use
  Company Number: US-ACADIA PHARMACEUTICALS INC.-ACA-2023-PIM-000715

PATIENT
  Sex: Female

DRUGS (12)
  1. NUPLAZID [Suspect]
     Active Substance: PIMAVANSERIN TARTRATE
     Indication: Parkinson^s disease psychosis
     Dosage: 34 MILLIGRAM, QD
     Route: 048
     Dates: start: 20230215
  2. CHLORZOXAZONE [Concomitant]
     Active Substance: CHLORZOXAZONE
  3. DULOXETINE [Concomitant]
     Active Substance: DULOXETINE
  4. ENTACAPONE [Concomitant]
     Active Substance: ENTACAPONE
  5. MELOXICAM [Concomitant]
     Active Substance: MELOXICAM
  6. MOTEGRITY [Concomitant]
     Active Substance: PRUCALOPRIDE SUCCINATE
  7. MINERALS\VITAMINS [Concomitant]
     Active Substance: MINERALS\VITAMINS
  8. ROPINIROLE [Concomitant]
     Active Substance: ROPINIROLE
  9. ROSUVASTATIN [Concomitant]
     Active Substance: ROSUVASTATIN
  10. RYTARY [Concomitant]
     Active Substance: CARBIDOPA\LEVODOPA
  11. SOLIFENACIN [Concomitant]
     Active Substance: SOLIFENACIN
  12. TRAMADOL [Concomitant]
     Active Substance: TRAMADOL

REACTIONS (1)
  - Dementia [Not Recovered/Not Resolved]
